FAERS Safety Report 5358728-5 (Version None)
Quarter: 2007Q2

REPORT INFORMATION
  Report Type: 
  Country: None (occurrence: None)
  Receive Date: 20070615
  Receipt Date: 20070604
  Transmission Date: 20071010
  Serious: Yes (Other)
  Sender: FDA-Public Use
  Company Number: CN-ROCHE-501610

PATIENT
  Age: 25 Year
  Sex: Female
  Weight: 53 kg

DRUGS (1)
  1. XENICAL [Suspect]
     Indication: OBESITY
     Route: 048
     Dates: start: 20050101, end: 20070604

REACTIONS (1)
  - OEDEMA [None]
